FAERS Safety Report 13411842 (Version 2)
Quarter: 2017Q4

REPORT INFORMATION
  Report Type: Spontaneous
  Country: US (occurrence: US)
  Receive Date: 20170406
  Receipt Date: 20171123
  Transmission Date: 20180320
  Serious: No
  Sender: FDA-Public Use
  Company Number: US-JNJFOC-20170304004

PATIENT
  Sex: Male

DRUGS (6)
  1. RISPERDAL [Suspect]
     Active Substance: RISPERIDONE
     Indication: BIPOLAR II DISORDER
     Dosage: VARYING DOSES OF 0.5 AND 1 MG
     Route: 048
     Dates: start: 20070314, end: 20070507
  2. RISPERDAL [Suspect]
     Active Substance: RISPERIDONE
     Indication: BIPOLAR II DISORDER
     Dosage: VARYING DOSES OF 0.5 AND 1 MG
     Route: 048
     Dates: start: 20070907, end: 20080313
  3. RISPERDAL [Suspect]
     Active Substance: RISPERIDONE
     Indication: ATTENTION DEFICIT/HYPERACTIVITY DISORDER
     Dosage: VARYING DOSES OF 0.5 AND 1 MG
     Route: 048
     Dates: start: 20070907, end: 20080313
  4. RISPERDAL [Suspect]
     Active Substance: RISPERIDONE
     Indication: ATTENTION DEFICIT/HYPERACTIVITY DISORDER
     Dosage: VARYING DOSES OF 0.5 AND 1 MG
     Route: 048
     Dates: start: 20070314, end: 20070507
  5. RISPERDAL [Suspect]
     Active Substance: RISPERIDONE
     Indication: BIPOLAR II DISORDER
     Route: 048
     Dates: start: 20070614
  6. RISPERDAL [Suspect]
     Active Substance: RISPERIDONE
     Indication: ATTENTION DEFICIT/HYPERACTIVITY DISORDER
     Route: 048
     Dates: start: 20070614

REACTIONS (2)
  - Gynaecomastia [Unknown]
  - Emotional disorder [Unknown]
